FAERS Safety Report 7928091-1 (Version None)
Quarter: 2011Q4

REPORT INFORMATION
  Report Type: 
  Country: None (occurrence: None)
  Receive Date: 20111118
  Receipt Date: 20111111
  Transmission Date: 20120403
  Serious: Yes (Hospitalization)
  Sender: FDA-Public Use
  Company Number: US-GLAXOSMITHKLINE-B0759455A

PATIENT
  Sex: Female

DRUGS (2)
  1. WELLBUTRIN [Suspect]
     Indication: ANTIDEPRESSANT THERAPY
     Dosage: 75MG PER DAY
     Route: 064
  2. MULTI-VITAMINS [Concomitant]
     Route: 064

REACTIONS (6)
  - GRAND MAL CONVULSION [None]
  - FEEDING DISORDER OF INFANCY OR EARLY CHILDHOOD [None]
  - LETHARGY [None]
  - HYPOGLYCAEMIA [None]
  - HYPERINSULINISM [None]
  - FOETAL EXPOSURE DURING PREGNANCY [None]
